FAERS Safety Report 4848678-2 (Version None)
Quarter: 2005Q4

REPORT INFORMATION
  Report Type: 
  Country: None (occurrence: None)
  Receive Date: 20051208
  Receipt Date: 20051128
  Transmission Date: 20060501
  Serious: Yes (Life-Threatening)
  Sender: FDA-Public Use
  Company Number: BR-JNJFOC-20051200683

PATIENT
  Sex: Female

DRUGS (1)
  1. ORTHO EVRA [Suspect]
     Indication: DRUG USE FOR UNKNOWN INDICATION
     Route: 062

REACTIONS (6)
  - CONFUSIONAL STATE [None]
  - HALLUCINATION, AUDITORY [None]
  - MANIA [None]
  - PREMENSTRUAL SYNDROME [None]
  - SCHIZOPHRENIA [None]
  - SUICIDAL IDEATION [None]
